FAERS Safety Report 6929584-6 (Version None)
Quarter: 2010Q3

REPORT INFORMATION
  Report Type: 
  Country: None (occurrence: None)
  Receive Date: 20100818
  Receipt Date: 20100811
  Transmission Date: 20110219
  Serious: Yes (Other)
  Sender: FDA-Public Use
  Company Number: BR-BAYER-201017805LA

PATIENT
  Age: 16 Year
  Sex: Female
  Weight: 60 kg

DRUGS (2)
  1. YASMIN [Suspect]
     Indication: CONTRACEPTION
     Dosage: USED FOR 3 OR 5 DAYS IN JUN-2010 OR IN JUL-2010
     Route: 048
     Dates: start: 20100101, end: 20100101
  2. YASMIN [Suspect]
     Route: 048
     Dates: start: 20100806

REACTIONS (7)
  - ASTHENIA [None]
  - DIARRHOEA [None]
  - DIZZINESS [None]
  - HEADACHE [None]
  - PYREXIA [None]
  - SYNCOPE [None]
  - VOMITING [None]
